FAERS Safety Report 6413212-2 (Version None)
Quarter: 2009Q4

REPORT INFORMATION
  Report Type: 
  Country: None (occurrence: None)
  Receive Date: 20091026
  Receipt Date: 20091020
  Transmission Date: 20100525
  Serious: Yes (Death, Hospitalization)
  Sender: FDA-Public Use
  Company Number: PHHY2009GB22556

PATIENT
  Sex: Female

DRUGS (5)
  1. CLOZARIL [Suspect]
     Indication: SCHIZOPHRENIA
     Dosage: 125 MG MANE, 300 MG NOCTE
     Route: 048
     Dates: start: 20010730
  2. PHYLLOCONTIN [Concomitant]
     Indication: ASTHMA
     Route: 048
  3. PHYLLOCONTIN [Concomitant]
     Indication: CHRONIC OBSTRUCTIVE PULMONARY DISEASE
  4. INHALATION THERAPY [Concomitant]
     Indication: ASTHMA
     Route: 048
  5. INHALATION THERAPY [Concomitant]
     Indication: CHRONIC OBSTRUCTIVE PULMONARY DISEASE

REACTIONS (2)
  - COLLAPSE OF LUNG [None]
  - NON-SMALL CELL LUNG CANCER [None]
